FAERS Safety Report 12642004 (Version 2)
Quarter: 2016Q3

REPORT INFORMATION
  Report Type: Spontaneous
  Country: US (occurrence: US)
  Receive Date: 20160810
  Receipt Date: 20160905
  Transmission Date: 20161109
  Serious: No
  Sender: FDA-Public Use
  Company Number: ALCN2016US005568

PATIENT
  Sex: Female

DRUGS (1)
  1. ICAPS LO [Suspect]
     Active Substance: MINERALS\VITAMINS
     Indication: PRODUCT USED FOR UNKNOWN INDICATION
     Dosage: UNK UNK, QD
     Route: 048

REACTIONS (3)
  - Poor quality drug administered [Unknown]
  - Product taste abnormal [Unknown]
  - Product odour abnormal [Unknown]
